FAERS Safety Report 16631378 (Version 1)
Quarter: 2019Q3

REPORT INFORMATION
  Report Type: Report from Study
  Country: US (occurrence: US)
  Receive Date: 20190725
  Receipt Date: 20190725
  Transmission Date: 20191004
  Serious: No
  Sender: FDA-Public Use
  Company Number: PHEH2019US030218

PATIENT
  Age: 35 Year
  Sex: Female

DRUGS (2)
  1. COSENTYX [Suspect]
     Active Substance: SECUKINUMAB
     Dosage: 150 MG, BID
     Route: 058
     Dates: start: 20190711
  2. COSENTYX [Suspect]
     Active Substance: SECUKINUMAB
     Indication: PRODUCT USED FOR UNKNOWN INDICATION
     Dosage: 150 MG, BID
     Route: 058
     Dates: start: 20190710

REACTIONS (4)
  - Psoriasis [Recovering/Resolving]
  - Inflammation [Recovering/Resolving]
  - Stress [Recovering/Resolving]
  - Product prescribing error [Recovering/Resolving]

NARRATIVE: CASE EVENT DATE: 20190710
